FAERS Safety Report 6614070-3 (Version None)
Quarter: 2010Q1

REPORT INFORMATION
  Report Type: 
  Country: None (occurrence: None)
  Receive Date: 20100304
  Receipt Date: 20100222
  Transmission Date: 20100710
  Serious: Yes (Other)
  Sender: FDA-Public Use
  Company Number: PHEH2006US01245

PATIENT
  Sex: Male
  Weight: 83.447 kg

DRUGS (5)
  1. ZOMETA [Suspect]
     Dosage: 4 MG, Q 4 WEEKS
  2. FOSAMAX [Suspect]
  3. DES [Concomitant]
     Dosage: UNK
     Dates: end: 20041012
  4. DECADRON [Concomitant]
  5. MITOXANTRONE [Concomitant]
     Dosage: UNK
     Dates: start: 20050501, end: 20050801

REACTIONS (27)
  - ANAEMIA [None]
  - ARTHRITIS [None]
  - ATRIOVENTRICULAR BLOCK [None]
  - BACK PAIN [None]
  - BRONCHITIS [None]
  - BUNDLE BRANCH BLOCK LEFT [None]
  - COMPRESSION FRACTURE [None]
  - FALL [None]
  - GINGIVAL SWELLING [None]
  - GYNAECOMASTIA [None]
  - HEPATIC STEATOSIS [None]
  - HIP FRACTURE [None]
  - INTERMITTENT CLAUDICATION [None]
  - JAW DISORDER [None]
  - KNEE OPERATION [None]
  - METASTASES TO LUNG [None]
  - ORAL DISORDER [None]
  - OSTEONECROSIS [None]
  - OSTEOPENIA [None]
  - PAIN IN JAW [None]
  - PERIPHERAL VASCULAR DISORDER [None]
  - PNEUMONIA [None]
  - POLYP [None]
  - PULMONARY HYPERTENSION [None]
  - TOOTH DISORDER [None]
  - VERTEBROPLASTY [None]
  - WEIGHT DECREASED [None]
